FAERS Safety Report 10024921 (Version 1)
Quarter: 2014Q1

REPORT INFORMATION
  Report Type: Spontaneous
  Country: US (occurrence: None)
  Receive Date: 20140228
  Receipt Date: 20140228
  Transmission Date: 20141002
  Serious: Yes (Other)
  Sender: FDA-Public Use
  Company Number: 225280

PATIENT
  Sex: Female

DRUGS (1)
  1. PICATO GEL [Suspect]
     Indication: NEOPLASM MALIGNANT
     Dosage: TOPICAL
     Route: 061

REACTIONS (3)
  - Off label use [None]
  - Product packaging quantity issue [None]
  - Incorrect drug administration duration [None]
